FAERS Safety Report 17910618 (Version 1)
Quarter: 2020Q2

REPORT INFORMATION
  Report Type: Spontaneous
  Country: CN (occurrence: CN)
  Receive Date: 20200618
  Receipt Date: 20200618
  Transmission Date: 20200714
  Serious: Yes (Other)
  Sender: FDA-Public Use
  Company Number: CN-ROCHE-2620746

PATIENT
  Sex: Female
  Weight: 45 kg

DRUGS (1)
  1. PEGASYS [Suspect]
     Active Substance: PEGINTERFERON ALFA-2A
     Indication: CHRONIC HEPATITIS B
     Route: 058
     Dates: start: 20200104

REACTIONS (4)
  - Insomnia [Unknown]
  - Neutrophil count decreased [Unknown]
  - Bone marrow failure [Unknown]
  - Influenza like illness [Unknown]
